FAERS Safety Report 15617281 (Version 3)
Quarter: 2018Q4

REPORT INFORMATION
  Report Type: Spontaneous
  Country: CZ (occurrence: CZ)
  Receive Date: 20181114
  Receipt Date: 20181127
  Transmission Date: 20190205
  Serious: Yes (Death, Other)
  Sender: FDA-Public Use
  Company Number: PHHY2018CZ153555

PATIENT
  Age: 7 Year
  Sex: Female

DRUGS (4)
  1. CEFOTAXIME SODIUM [Suspect]
     Active Substance: CEFOTAXIME SODIUM
     Indication: PNEUMONIA PNEUMOCOCCAL
     Dosage: UNK
     Route: 065
  2. AMOKSIKLAV [Suspect]
     Active Substance: AMOXICILLIN\CLAVULANATE POTASSIUM
     Indication: PNEUMONIA
     Dosage: UNK
     Route: 048
  3. TAMIFLU [Suspect]
     Active Substance: OSELTAMIVIR PHOSPHATE
     Indication: INFLUENZA
     Dosage: UNK
     Route: 048
  4. TAMIFLU [Suspect]
     Active Substance: OSELTAMIVIR PHOSPHATE
     Dosage: UNK
     Route: 048

REACTIONS (10)
  - Pulmonary necrosis [Fatal]
  - Influenza [Fatal]
  - Hypercapnia [Fatal]
  - Effusion [Fatal]
  - Pneumothorax [Fatal]
  - Circulatory collapse [Fatal]
  - Respiratory failure [Fatal]
  - Cardiac failure [Fatal]
  - Hypoxia [Fatal]
  - Haemothorax [Fatal]

NARRATIVE: CASE EVENT DATE: 2018
